FAERS Safety Report 9447789 (Version 2)
Quarter: 2013Q3

REPORT INFORMATION
  Report Type: Spontaneous
  Country: JP (occurrence: JP)
  Receive Date: 20130808
  Receipt Date: 20130829
  Transmission Date: 20140515
  Serious: Yes (Death, Hospitalization)
  Sender: FDA-Public Use
  Company Number: JP-JNJFOC-20130803128

PATIENT
  Age: 75 Year
  Sex: Female
  Weight: 43 kg

DRUGS (9)
  1. XARELTO [Suspect]
     Indication: CEREBROVASCULAR ACCIDENT PROPHYLAXIS
     Route: 048
     Dates: start: 20130421, end: 20130628
  2. XARELTO [Suspect]
     Indication: ATRIAL FIBRILLATION
     Route: 048
     Dates: start: 20130421, end: 20130628
  3. TRANDOLAPRIL [Suspect]
     Indication: HYPERTENSION
     Route: 048
     Dates: start: 20130612, end: 20130628
  4. ZANTAC [Concomitant]
     Indication: GASTRITIS
     Route: 048
     Dates: start: 20130416, end: 20130711
  5. MAINTATE [Concomitant]
     Indication: CARDIAC FAILURE CHRONIC
     Route: 048
     Dates: start: 20130417, end: 20130711
  6. FUROSEMIDE [Concomitant]
     Route: 065
  7. ALDACTONE A [Concomitant]
     Indication: HYPERTENSION
     Route: 048
     Dates: start: 20130417, end: 20130711
  8. DIART [Concomitant]
     Route: 048
  9. METILDIGOXIN [Concomitant]
     Indication: ATRIAL FIBRILLATION
     Route: 048
     Dates: start: 20130416, end: 20130711

REACTIONS (1)
  - Interstitial lung disease [Fatal]
